FAERS Safety Report 25344788 (Version 1)
Quarter: 2025Q2

REPORT INFORMATION
  Report Type: Report from Study
  Country: US (occurrence: US)
  Receive Date: 20250522
  Receipt Date: 20250522
  Transmission Date: 20250716
  Serious: Yes (Other)
  Sender: AUROBINDO
  Company Number: US-AUROBINDO-AUR-APL-2022-040932

PATIENT
  Age: 61 Year
  Sex: Female

DRUGS (6)
  1. EXEMESTANE [Suspect]
     Active Substance: EXEMESTANE
     Indication: Metastatic neoplasm
     Route: 065
  2. LETROZOLE [Suspect]
     Active Substance: LETROZOLE
     Indication: Metastatic neoplasm
     Route: 065
  3. LEUPROLIDE ACETATE [Suspect]
     Active Substance: LEUPROLIDE ACETATE
     Indication: Metastatic neoplasm
     Route: 065
  4. SIROLIMUS [Suspect]
     Active Substance: SIROLIMUS
     Indication: Metastatic neoplasm
     Dosage: 4 MILLIGRAM, ONCE A DAY
     Route: 065
  5. SIROLIMUS [Suspect]
     Active Substance: SIROLIMUS
     Dosage: 1 MILLIGRAM, ONCE A DAY
     Route: 065
  6. SIROLIMUS [Suspect]
     Active Substance: SIROLIMUS
     Dosage: 4 MILLIGRAM, ONCE A DAY
     Route: 065

REACTIONS (2)
  - Drug ineffective [Unknown]
  - Therapy partial responder [Unknown]
